FAERS Safety Report 15053860 (Version 4)
Quarter: 2019Q2

REPORT INFORMATION
  Report Type: Spontaneous
  Country: US (occurrence: US)
  Receive Date: 20180622
  Receipt Date: 20190402
  Transmission Date: 20190711
  Serious: Yes (Hospitalization)
  Sender: FDA-Public Use
  Company Number: US-OTSUKA-2018_015975

PATIENT
  Sex: Female

DRUGS (3)
  1. ABILIFY [Suspect]
     Active Substance: ARIPIPRAZOLE
     Indication: ANXIETY
     Dosage: 20 MG, QD
     Route: 065
     Dates: end: 201706
  2. ABILIFY [Suspect]
     Active Substance: ARIPIPRAZOLE
     Indication: BIPOLAR DISORDER
     Dosage: 15 MG, QD
     Route: 065
  3. ABILIFY MAINTENA [Suspect]
     Active Substance: ARIPIPRAZOLE
     Indication: PRODUCT USED FOR UNKNOWN INDICATION
     Dosage: 400 MG, UNK
     Route: 065

REACTIONS (13)
  - Product use in unapproved indication [Unknown]
  - Anhedonia [Unknown]
  - Injury [Unknown]
  - Compulsive shopping [Recovered/Resolved]
  - Mental disorder [Unknown]
  - Homeless [Unknown]
  - Pain [Unknown]
  - Loss of employment [Unknown]
  - Condition aggravated [Unknown]
  - Economic problem [Unknown]
  - Emotional distress [Unknown]
  - Anxiety [Unknown]
  - Divorced [Unknown]

NARRATIVE: CASE EVENT DATE: 2012
